FAERS Safety Report 14373604 (Version 10)
Quarter: 2018Q3

REPORT INFORMATION
  Report Type: Report from Study
  Country: US (occurrence: US)
  Receive Date: 20180110
  Receipt Date: 20180921
  Transmission Date: 20181010
  Serious: Yes (Hospitalization, Other)
  Sender: FDA-Public Use
  Company Number: US-MALLINCKRODT-T201800008

PATIENT
  Age: 73 Year
  Sex: Female

DRUGS (8)
  1. REPOSITORY CORTICOTROPIN INJECTION [Suspect]
     Active Substance: CORTICOTROPIN
     Indication: NEPHROTIC SYNDROME
     Dosage: 40 UNITS/0.5 ML, 2 TIMES PER WEEK (TUESDAY/FRIDAY)
     Route: 058
     Dates: start: 20171221
  2. LYRICA [Concomitant]
     Active Substance: PREGABALIN
     Indication: HYPERTENSION
     Dosage: UNKNOWN
     Route: 065
  3. LEVOTHYROXINE. [Concomitant]
     Active Substance: LEVOTHYROXINE
     Indication: THYROID DISORDER
     Dosage: UNKNOWN
     Route: 065
  4. CRESTOR [Concomitant]
     Active Substance: ROSUVASTATIN CALCIUM
     Indication: HYPERTENSION
     Dosage: UNKNOWN
     Route: 065
  5. REPOSITORY CORTICOTROPIN INJECTION [Suspect]
     Active Substance: CORTICOTROPIN
     Indication: PROTEINURIA
     Dosage: 80 UNITS/1 ML, 2 TIMES PER WEEK (TUESDAY/FRIDAY)
     Route: 058
  6. TOPROL XL [Concomitant]
     Active Substance: METOPROLOL SUCCINATE
     Indication: HYPERTENSION
     Dosage: UNKNOWN
     Route: 065
  7. LEXAPRO [Concomitant]
     Active Substance: ESCITALOPRAM OXALATE
     Indication: HYPERTENSION
     Dosage: UNKNOWN
     Route: 065
  8. REPOSITORY CORTICOTROPIN INJECTION [Suspect]
     Active Substance: CORTICOTROPIN
     Indication: GLOMERULONEPHRITIS MEMBRANOUS

REACTIONS (8)
  - Nasopharyngitis [Not Recovered/Not Resolved]
  - Pneumonia [Recovering/Resolving]
  - Oedema peripheral [Not Recovered/Not Resolved]
  - Urinary tract infection [Unknown]
  - Wrong technique in product usage process [Not Recovered/Not Resolved]
  - Haemoptysis [Not Recovered/Not Resolved]
  - Walking aid user [Unknown]
  - Drug dose omission [Unknown]

NARRATIVE: CASE EVENT DATE: 2018
